FAERS Safety Report 8417134-7 (Version None)
Quarter: 2012Q2

REPORT INFORMATION
  Report Type: 
  Country: None (occurrence: None)
  Receive Date: 20120606
  Receipt Date: 20120529
  Transmission Date: 20120825
  Serious: Yes (Hospitalization)
  Sender: FDA-Public Use
  Company Number: US-ACTELION-A-US2012-62126

PATIENT

DRUGS (2)
  1. REMICADE [Concomitant]
  2. TRACLEER [Suspect]
     Indication: PULMONARY ARTERIAL HYPERTENSION
     Dosage: UNK
     Route: 048
     Dates: start: 20030912

REACTIONS (5)
  - ABSCESS INTESTINAL [None]
  - GASTRIC INFECTION [None]
  - DIARRHOEA [None]
  - HERNIA REPAIR [None]
  - CLOSTRIDIUM DIFFICILE COLITIS [None]
